FAERS Safety Report 10029393 (Version 1)
Quarter: 2014Q1

REPORT INFORMATION
  Report Type: Spontaneous
  Country: NL (occurrence: NL)
  Receive Date: 20140322
  Receipt Date: 20140322
  Transmission Date: 20141002
  Serious: Yes (Hospitalization)
  Sender: FDA-Public Use
  Company Number: PHHY2014NL034117

PATIENT
  Sex: Female
  Weight: 89 kg

DRUGS (1)
  1. CARBAMAZEPINE [Suspect]
     Indication: FACIAL PAIN
     Dosage: 200 MG, TID
     Dates: start: 201311, end: 201311

REACTIONS (2)
  - Swelling face [Recovered/Resolved]
  - Pharyngeal oedema [Recovered/Resolved]
